FAERS Safety Report 4936559-5 (Version None)
Quarter: 2006Q1

REPORT INFORMATION
  Report Type: 
  Country: None (occurrence: None)
  Receive Date: 20060127
  Receipt Date: 20051109
  Transmission Date: 20060701
  Serious: Yes (Other)
  Sender: FDA-Public Use
  Company Number: 2005154370

PATIENT
  Age: 33 Year
  Sex: Male
  Weight: 90.7194 kg

DRUGS (5)
  1. LYRICA [Suspect]
     Indication: NEURALGIA
     Dosage: 150 MG (75 MG, 2 IN 1 D), ORAL
     Route: 048
     Dates: start: 20051001
  2. NEURONTIN [Suspect]
     Indication: NEURALGIA
     Dosage: 900 MG (300 MG, 3 IN 1 D), ORAL
     Route: 048
     Dates: start: 20050901, end: 20051001
  3. OXYCONTIN (OXYCONDONE HYDROCHLORIDE) [Concomitant]
  4. FELDENE [Concomitant]
  5. TRAZODONE HCL [Concomitant]

REACTIONS (3)
  - DRUG INEFFECTIVE [None]
  - NEURALGIA [None]
  - PYREXIA [None]
